FAERS Safety Report 17209392 (Version 1)
Quarter: 2019Q4

REPORT INFORMATION
  Report Type: Spontaneous
  Country: JP (occurrence: JP)
  Receive Date: 20191227
  Receipt Date: 20191227
  Transmission Date: 20200122
  Serious: Yes (Death, Life-Threatening, Other)
  Sender: FDA-Public Use
  Company Number: JP-OTSUKA-2019_038428AA

PATIENT
  Age: 76 Year
  Sex: Male

DRUGS (2)
  1. SAMSCA [Suspect]
     Active Substance: TOLVAPTAN
     Indication: CARDIAC FAILURE
     Dosage: 15 MG, QD
     Route: 048
     Dates: start: 20191106, end: 20191110
  2. SAMSCA [Suspect]
     Active Substance: TOLVAPTAN
     Dosage: 7.5 MG, QD
     Route: 048
     Dates: start: 20191105

REACTIONS (5)
  - Cardiac failure [Fatal]
  - Blood creatinine increased [Unknown]
  - Hypernatraemia [Unknown]
  - Altered state of consciousness [Unknown]
  - Blood urea increased [Unknown]

NARRATIVE: CASE EVENT DATE: 20191110
